FAERS Safety Report 9786816 (Version 4)
Quarter: 2014Q1

REPORT INFORMATION
  Report Type: Spontaneous
  Country: US (occurrence: US)
  Receive Date: 20131227
  Receipt Date: 20140305
  Transmission Date: 20141002
  Serious: Yes (Hospitalization, Other)
  Sender: FDA-Public Use
  Company Number: US-GILEAD-2013-0090837

PATIENT
  Age: 38 Year
  Sex: Male

DRUGS (2)
  1. LETAIRIS [Suspect]
     Indication: PRODUCT USED FOR UNKNOWN INDICATION
     Dosage: 10 MG, QD
     Route: 048
     Dates: start: 20120109
  2. ADCIRCA [Concomitant]

REACTIONS (7)
  - Thyroidectomy [Unknown]
  - Medical device complication [Unknown]
  - Haematoma evacuation [Unknown]
  - Infection [Unknown]
  - Sepsis [Unknown]
  - Malaise [Unknown]
  - Wound [Unknown]
